FAERS Safety Report 16940411 (Version 1)
Quarter: 2019Q4

REPORT INFORMATION
  Report Type: Spontaneous
  Country: FR (occurrence: FR)
  Receive Date: 20191021
  Receipt Date: 20191021
  Transmission Date: 20200122
  Serious: Yes (Other)
  Sender: FDA-Public Use
  Company Number: FR-GILEAD-2019-0433138

PATIENT
  Age: 43 Year
  Sex: Male
  Weight: 64 kg

DRUGS (11)
  1. MALOCIDE [PYRIMETHAMINE] [Concomitant]
     Active Substance: PYRIMETHAMINE
  2. VIMPAT [Concomitant]
     Active Substance: LACOSAMIDE
  3. CLARITHROMYCINE [Concomitant]
     Active Substance: CLARITHROMYCIN
  4. TRUVADA [Suspect]
     Active Substance: EMTRICITABINE\TENOFOVIR DISOPROXIL FUMARATE
     Indication: HIV INFECTION
     Dosage: 200/245, QD
     Route: 065
     Dates: start: 20180823, end: 201906
  5. ETHAMBUTOL [Concomitant]
     Active Substance: ETHAMBUTOL HYDROCHLORIDE
  6. PREZISTA [Concomitant]
     Active Substance: DARUNAVIR ETHANOLATE
     Indication: HIV INFECTION
     Dosage: UNK
     Dates: start: 20180823, end: 201906
  7. LEDERFOLINE [Concomitant]
     Active Substance: LEUCOVORIN CALCIUM
  8. NORVIR [Concomitant]
     Active Substance: RITONAVIR
     Indication: HIV INFECTION
     Dosage: UNK
     Dates: start: 20180823, end: 201906
  9. ZITHROMAX [Concomitant]
     Active Substance: AZITHROMYCIN DIHYDRATE
  10. WELLVONE [Concomitant]
     Active Substance: ATOVAQUONE
  11. LEXOMIL [Concomitant]
     Active Substance: BROMAZEPAM

REACTIONS (7)
  - Inappropriate antidiuretic hormone secretion [Unknown]
  - Blood triglycerides increased [Not Recovered/Not Resolved]
  - Anxiety [Not Recovered/Not Resolved]
  - Dyspepsia [Not Recovered/Not Resolved]
  - Pyrexia [Not Recovered/Not Resolved]
  - Weight increased [Not Recovered/Not Resolved]
  - Anaemia [Unknown]

NARRATIVE: CASE EVENT DATE: 201809
